FAERS Safety Report 23875683 (Version 1)
Quarter: 2024Q2

REPORT INFORMATION
  Report Type: Spontaneous
  Country: US (occurrence: US)
  Receive Date: 20240520
  Receipt Date: 20240520
  Transmission Date: 20240717
  Serious: No
  Sender: FDA-Public Use
  Company Number: US-MYLANLABS-2024M1040414

PATIENT

DRUGS (1)
  1. ESTRADIOL TRANSDERMAL SYSTEM [Suspect]
     Active Substance: ESTRADIOL
     Indication: Menopausal symptoms
     Dosage: 0.1 MILLIGRAM, QD (ONCE WEEKLY)
     Route: 062

REACTIONS (8)
  - Rash papular [Unknown]
  - Application site irritation [Unknown]
  - Application site pain [Unknown]
  - Application site reaction [Unknown]
  - Therapeutic response changed [Unknown]
  - Product odour abnormal [Unknown]
  - Product adhesion issue [Unknown]
  - Product substitution issue [Unknown]
